FAERS Safety Report 13701864 (Version 1)
Quarter: 2017Q2

REPORT INFORMATION
  Report Type: Report from Study
  Country: DE (occurrence: DE)
  Receive Date: 20170629
  Receipt Date: 20170629
  Transmission Date: 20170830
  Serious: Yes (Hospitalization)
  Sender: FDA-Public Use
  Company Number: DE-JNJFOC-20170625398

PATIENT
  Sex: Male

DRUGS (5)
  1. ASPIRIN. [Concomitant]
     Active Substance: ASPIRIN
     Route: 048
  2. XARELTO [Suspect]
     Active Substance: RIVAROXABAN
     Indication: ATRIAL FIBRILLATION
     Route: 048
  3. SIMVASTATIN. [Concomitant]
     Active Substance: SIMVASTATIN
     Route: 048
  4. L-THYROX [Concomitant]
     Active Substance: LEVOTHYROXINE SODIUM
     Route: 048
  5. SEVIKAR [Concomitant]
     Active Substance: AMLODIPINE BESYLATE\OLMESARTAN MEDOXOMIL
     Route: 048

REACTIONS (5)
  - Brain stem ischaemia [Unknown]
  - Diplopia [Unknown]
  - Gait disturbance [Unknown]
  - Vertigo [Unknown]
  - Dysarthria [Unknown]

NARRATIVE: CASE EVENT DATE: 20170612
